FAERS Safety Report 14302289 (Version 1)
Quarter: 2017Q4

REPORT INFORMATION
  Report Type: Spontaneous
  Country: US (occurrence: US)
  Receive Date: 20171219
  Receipt Date: 20171219
  Transmission Date: 20180321
  Serious: No
  Sender: FDA-Public Use
  Company Number: US-SUPERNUS PHARMACEUTICALS, INC.-2017SUP00207

PATIENT
  Sex: Female
  Weight: 68.27 kg

DRUGS (5)
  1. TROKENDI XR [Suspect]
     Active Substance: TOPIRAMATE
     Indication: MIGRAINE
     Dosage: 25 MG, 1X/DAY
     Route: 048
     Dates: start: 201702, end: 201705
  2. SUMATRIPTAN. [Concomitant]
     Active Substance: SUMATRIPTAN
  3. TROKENDI XR [Suspect]
     Active Substance: TOPIRAMATE
     Indication: MIGRAINE
     Dosage: 50 MG, 1X/DAY
     Route: 048
     Dates: start: 201705
  4. UNSPECIFIED ANTIDEPRESSANT [Concomitant]
  5. UNSPECIFED BLOOD PRESSURE MEDICATION [Concomitant]

REACTIONS (1)
  - Drug ineffective [Not Recovered/Not Resolved]

NARRATIVE: CASE EVENT DATE: 2017
